FAERS Safety Report 8872974 (Version 1)
Quarter: 2012Q4

REPORT INFORMATION
  Report Type: 
  Country: US (occurrence: US)
  Receive Date: 20121026
  Receipt Date: 20121026
  Transmission Date: 20130627
  Serious: No
  Sender: FDA-Public Use
  Company Number: US-AMGEN-USASP2012050121

PATIENT
  Sex: Male

DRUGS (2)
  1. ENBREL [Suspect]
     Indication: RHEUMATOID ARTHRITIS
     Dosage: 50 mg, qwk
     Dates: start: 20111125, end: 20120601
  2. TREXALL [Concomitant]
     Dosage: UNK
     Dates: start: 2008

REACTIONS (1)
  - Therapeutic response decreased [Not Recovered/Not Resolved]
